FAERS Safety Report 20044125 (Version 2)
Quarter: 2022Q1

REPORT INFORMATION
  Report Type: Spontaneous
  Country: US (occurrence: US)
  Receive Date: 20211108
  Receipt Date: 20220104
  Transmission Date: 20220423
  Serious: Yes (Life-Threatening, Other)
  Sender: FDA-Public Use
  Company Number: US-PFIZER INC-202101440076

PATIENT
  Age: 15 Year
  Sex: Male

DRUGS (8)
  1. BENEFIX [Suspect]
     Active Substance: COAGULATION FACTOR IX RECOMBINANT HUMAN\ISOPROPYL ALCOHOL
     Indication: Factor IX deficiency
     Dosage: 100 IU
     Dates: start: 20210315
  2. BENEFIX [Suspect]
     Active Substance: COAGULATION FACTOR IX RECOMBINANT HUMAN\ISOPROPYL ALCOHOL
     Indication: Von Willebrand^s disease
  3. ALPROLIX [Suspect]
     Active Substance: EFTRENONACOG ALFA
     Indication: Factor IX deficiency
     Dosage: 40 IU/KG
     Route: 042
     Dates: start: 20210304
  4. ALPROLIX [Suspect]
     Active Substance: EFTRENONACOG ALFA
     Indication: Von Willebrand^s disease
     Dosage: 50 IU/KG
     Route: 042
     Dates: start: 20210307
  5. ALPROLIX [Suspect]
     Active Substance: EFTRENONACOG ALFA
     Dosage: 44 IU
     Dates: start: 20210313
  6. ALPROLIX [Suspect]
     Active Substance: EFTRENONACOG ALFA
     Dosage: 44 IU/KG
     Dates: start: 20210314
  7. HEMOSTATIC [Concomitant]
     Dosage: UNK
  8. TRANEXAMIC ACID [Concomitant]
     Active Substance: TRANEXAMIC ACID
     Dosage: UNK
     Route: 042

REACTIONS (11)
  - Swollen tongue [Unknown]
  - Stridor [Unknown]
  - Pharyngeal swelling [Unknown]
  - Thrombosis [Unknown]
  - Haemorrhage [Unknown]
  - Tonsillar haemorrhage [Unknown]
  - Angioedema [Unknown]
  - Tongue oedema [Unknown]
  - Palatal oedema [Unknown]
  - Dysphagia [Unknown]
  - Pruritus [Unknown]

NARRATIVE: CASE EVENT DATE: 20210309
